FAERS Safety Report 7201263-X (Version None)
Quarter: 2010Q4

REPORT INFORMATION
  Report Type: 
  Country: None (occurrence: None)
  Receive Date: 20101229
  Receipt Date: 20101221
  Transmission Date: 20110411
  Serious: Yes (Hospitalization)
  Sender: FDA-Public Use
  Company Number: DE-JNJFOC-20101206772

PATIENT
  Age: 67 Year
  Sex: Female
  Weight: 77 kg

DRUGS (10)
  1. FENTANYL-100 [Suspect]
     Indication: PAIN
     Route: 062
  2. FENTANYL-100 [Suspect]
     Route: 062
  3. ABSTRAL [Suspect]
     Indication: PAIN
     Route: 002
     Dates: start: 20100917, end: 20100924
  4. PANTOPRAZOLE [Concomitant]
     Indication: REFLUX OESOPHAGITIS
     Route: 002
  5. LYRICA [Concomitant]
     Indication: PAIN
     Route: 002
  6. LACTULOSE [Concomitant]
     Indication: CONSTIPATION
     Route: 002
  7. TOLPERISONE [Concomitant]
     Indication: MUSCLE TIGHTNESS
     Route: 048
  8. AMITRIPTYLINE HCL [Concomitant]
     Indication: PAIN
     Route: 048
  9. DIAZEPAM [Concomitant]
     Indication: MUSCLE TIGHTNESS
     Route: 048
  10. METAMIZOL [Concomitant]
     Indication: PAIN
     Route: 048

REACTIONS (6)
  - DRUG WITHDRAWAL SYNDROME [None]
  - HOT FLUSH [None]
  - PAIN [None]
  - PRODUCT ADHESION ISSUE [None]
  - RESTLESS LEGS SYNDROME [None]
  - TREMOR [None]
